FAERS Safety Report 7904363-1 (Version None)
Quarter: 2011Q4

REPORT INFORMATION
  Report Type: 
  Country: None (occurrence: None)
  Receive Date: 20111109
  Receipt Date: 20111107
  Transmission Date: 20120403
  Serious: Yes (Other)
  Sender: FDA-Public Use
  Company Number: US-PFIZER INC-2010027468

PATIENT
  Sex: Female
  Weight: 54 kg

DRUGS (10)
  1. LIPITOR [Suspect]
     Dosage: 10 MG, UNK
     Route: 048
  2. SYNTHROID [Concomitant]
     Indication: THYROID DISORDER
     Dosage: 88 UG, 1X/DAY
     Route: 048
  3. CENTRUM SILVER [Concomitant]
     Dosage: UNK
     Route: 048
  4. ACETYLSALICYLIC ACID [Concomitant]
     Dosage: 81 MG, 1X/DAY
     Route: 048
  5. AMITRIPTYLINE [Concomitant]
     Indication: NERVOUSNESS
     Dosage: 10 MG, 1X/DAY
     Route: 048
  6. DYAZIDE [Concomitant]
     Dosage: 37.5/25
     Route: 048
  7. LYRICA [Suspect]
     Indication: PAIN
     Dosage: 50 MG, 1X/DAY
     Route: 048
     Dates: start: 20100301
  8. ACYCLOVIR [Concomitant]
     Indication: SKIN DISORDER
     Dosage: 40 MG, 2X/DAY
     Route: 048
  9. PRESERVISION SOFTGELS WITH LUTEIN [Concomitant]
     Indication: EYE DISORDER
     Dosage: UNK
  10. CALCIUM WITH VITAMIN D [Concomitant]
     Dosage: UNK
     Route: 048

REACTIONS (4)
  - VISUAL IMPAIRMENT [None]
  - PAIN [None]
  - GAIT DISTURBANCE [None]
  - IMPAIRED DRIVING ABILITY [None]
